FAERS Safety Report 24410696 (Version 1)
Quarter: 2024Q4

REPORT INFORMATION
  Report Type: Spontaneous
  Country: NL (occurrence: NL)
  Receive Date: 20241008
  Receipt Date: 20241008
  Transmission Date: 20250115
  Serious: Yes (Disabling)
  Sender: ACCORD
  Company Number: None

PATIENT
  Age: 56 Year
  Sex: Female
  Weight: 73 kg

DRUGS (2)
  1. ROSUVASTATIN CALCIUM [Suspect]
     Active Substance: ROSUVASTATIN CALCIUM
     Indication: Hypercholesterolaemia
     Dosage: STRENGTH: 10 MG, 1X PER DAY
     Dates: start: 20231101, end: 20240201
  2. Ascal [Concomitant]
     Dosage: STRENGTH: 100 MG

REACTIONS (6)
  - Pain [Recovered/Resolved]
  - Muscle spasms [Recovered/Resolved]
  - Memory impairment [Recovered/Resolved]
  - Affect lability [Recovered/Resolved]
  - Osteoarthritis [Recovered/Resolved]
  - Myalgia [Recovered/Resolved]
